FAERS Safety Report 14034991 (Version 1)
Quarter: 2017Q4

REPORT INFORMATION
  Report Type: Spontaneous
  Country: US (occurrence: US)
  Receive Date: 20171003
  Receipt Date: 20171003
  Transmission Date: 20180321
  Serious: No
  Sender: FDA-Public Use
  Company Number: US-PERRIGO-17US001509

PATIENT
  Age: 3 Year
  Sex: Male
  Weight: 15.87 kg

DRUGS (3)
  1. CHILDRENS CETIRIZINE HYDROCHLORIDE ALLERGY [Suspect]
     Active Substance: CETIRIZINE HYDROCHLORIDE
     Indication: URTICARIA
     Dosage: 5 MG, SINGLE IN THE EVENING
     Route: 048
     Dates: start: 20170207, end: 20170207
  2. ANTIBIOTIC EYE [Concomitant]
     Indication: CONJUNCTIVITIS
     Dosage: UNKNOWN, UNKNOWN
     Route: 047
     Dates: start: 201702
  3. CHILDRENS CETIRIZINE HYDROCHLORIDE ALLERGY [Suspect]
     Active Substance: CETIRIZINE HYDROCHLORIDE
     Indication: NASAL CONGESTION
     Dosage: 2.5 MG, SINGLE IN THE EVENING
     Route: 048
     Dates: start: 20170208, end: 20170208

REACTIONS (2)
  - Hyperhidrosis [Recovered/Resolved]
  - Off label use [Recovered/Resolved]

NARRATIVE: CASE EVENT DATE: 20170207
